FAERS Safety Report 11692755 (Version 4)
Quarter: 2015Q4

REPORT INFORMATION
  Report Type: Other
  Country: US (occurrence: US)
  Receive Date: 20151103
  Receipt Date: 20151124
  Transmission Date: 20160304
  Serious: Yes (Life-Threatening, Hospitalization, Other)
  Sender: FDA-Public Use
  Company Number: US-MYLANLABS-2015M1038230

PATIENT

DRUGS (3)
  1. EPIPEN [Suspect]
     Active Substance: EPINEPHRINE
     Indication: HYPERSENSITIVITY
     Dosage: UNK UNK, ONCE
     Route: 030
     Dates: start: 20151025, end: 20151025
  2. EPIPEN [Suspect]
     Active Substance: EPINEPHRINE
     Indication: RASH
  3. EPIPEN [Suspect]
     Active Substance: EPINEPHRINE
     Indication: DYSPNOEA

REACTIONS (6)
  - Septic shock [Not Recovered/Not Resolved]
  - Gas gangrene [Not Recovered/Not Resolved]
  - Clostridial infection [Not Recovered/Not Resolved]
  - Oedema peripheral [Not Recovered/Not Resolved]
  - Injection site pain [Not Recovered/Not Resolved]
  - Necrotising myositis [Not Recovered/Not Resolved]

NARRATIVE: CASE EVENT DATE: 201510
